FAERS Safety Report 9085954 (Version 1)
Quarter: 2013Q1

REPORT INFORMATION
  Report Type: Report from Study
  Country: US (occurrence: US)
  Receive Date: 20130131
  Receipt Date: 20130131
  Transmission Date: 20140127
  Serious: No
  Sender: FDA-Public Use
  Company Number: US-ABBOTT-12P-163-0993012-00

PATIENT
  Age: 67 Year
  Sex: Female

DRUGS (12)
  1. HUMIRA [Suspect]
     Indication: CROHN^S DISEASE
     Dates: start: 20120807
  2. OMEPRAZOLE [Concomitant]
     Indication: HIATUS HERNIA
  3. OMEPRAZOLE [Concomitant]
     Indication: ULCER HAEMORRHAGE
  4. GABAPENTIN [Concomitant]
     Indication: NEURALGIA
     Dosage: 300MG DAILY
  5. PAXIL [Concomitant]
     Indication: DEPRESSION
     Dosage: 1 LITTLE PILL A DAY
  6. ALLOPURINOL [Concomitant]
     Indication: GOUTY ARTHRITIS
     Dosage: 100MG DAILY
  7. ALINE PROBIOTIC [Concomitant]
     Indication: CROHN^S DISEASE
  8. COLCRYS [Concomitant]
     Indication: GOUT
  9. FUROSEMIDE [Concomitant]
     Indication: OEDEMA PERIPHERAL
  10. FEXOFENADINE [Concomitant]
     Indication: HYPERSENSITIVITY
     Dosage: 180MG DAILY
  11. LORTAB [Concomitant]
     Indication: PAIN
  12. TRAMADOL [Concomitant]
     Indication: PAIN

REACTIONS (7)
  - Flatulence [Unknown]
  - Diarrhoea [Recovering/Resolving]
  - Visual acuity reduced [Unknown]
  - Vision blurred [Unknown]
  - Frequent bowel movements [Unknown]
  - Drug ineffective [Unknown]
  - Pruritus generalised [Unknown]
